FAERS Safety Report 16051144 (Version 2)
Quarter: 2019Q2

REPORT INFORMATION
  Report Type: Spontaneous
  Country: US (occurrence: US)
  Receive Date: 20190308
  Receipt Date: 20190405
  Transmission Date: 20190711
  Serious: No
  Sender: FDA-Public Use
  Company Number: US-ASTRAZENECA-2019SE25095

PATIENT
  Age: 24849 Day
  Sex: Female
  Weight: 108.9 kg

DRUGS (1)
  1. BYDUREON BCISE [Suspect]
     Active Substance: EXENATIDE
     Indication: DIABETES MELLITUS
     Route: 058
     Dates: start: 20190110

REACTIONS (9)
  - Injection site discolouration [Not Recovered/Not Resolved]
  - Injection site pruritus [Unknown]
  - Injection site irritation [Recovered/Resolved]
  - Product dose omission [Unknown]
  - Anxiety [Unknown]
  - Injection site pain [Recovered/Resolved]
  - Injection site mass [Unknown]
  - Device leakage [Unknown]
  - Injection site scab [Recovered/Resolved with Sequelae]

NARRATIVE: CASE EVENT DATE: 20190131
